FAERS Safety Report 5457442-5 (Version None)
Quarter: 2007Q3

REPORT INFORMATION
  Report Type: 
  Country: None (occurrence: None)
  Receive Date: 20070918
  Receipt Date: 20070913
  Transmission Date: 20080115
  Serious: Yes (Hospitalization)
  Sender: FDA-Public Use
  Company Number: US-GILEAD-2007-0013364

PATIENT
  Age: 53 Year
  Sex: Male

DRUGS (7)
  1. VIREAD [Suspect]
     Indication: HEPATITIS B
  2. VIREAD [Suspect]
     Indication: HIV INFECTION
  3. PEGYLATED INTERFERON ALFA-2A [Suspect]
     Indication: HEPATITIS B
  4. LAMIVUDINE [Suspect]
     Indication: HIV INFECTION
  5. LAMIVUDINE [Suspect]
     Indication: HEPATITIS B
  6. DIDANOSINE [Suspect]
     Indication: HIV INFECTION
  7. TRIMETHOPRIM/SULFAMETHOXAZONE [Concomitant]
     Indication: ANTIFUNGAL PROPHYLAXIS

REACTIONS (1)
  - ENDOCARDITIS [None]
